FAERS Safety Report 8326474-1 (Version None)
Quarter: 2012Q2

REPORT INFORMATION
  Report Type: 
  Country: None (occurrence: None)
  Receive Date: 20120501
  Receipt Date: 20120427
  Transmission Date: 20120825
  Serious: Yes (Hospitalization)
  Sender: FDA-Public Use
  Company Number: GB-PFIZER INC-2012104495

PATIENT
  Age: 44 Year
  Sex: Female
  Weight: 87.6 kg

DRUGS (1)
  1. VARENICLINE TARTRATE [Suspect]
     Indication: SMOKING CESSATION THERAPY
     Dosage: UNK STARTER PACK
     Route: 048
     Dates: start: 20120327, end: 20120404

REACTIONS (4)
  - HEART RATE INCREASED [None]
  - DYSPNOEA [None]
  - OXYGEN SATURATION DECREASED [None]
  - WHEEZING [None]
